FAERS Safety Report 23691709 (Version 1)
Quarter: 2024Q1

REPORT INFORMATION
  Report Type: Spontaneous
  Country: US (occurrence: None)
  Receive Date: 20240328
  Receipt Date: 20240328
  Transmission Date: 20240409
  Serious: No
  Sender: FDA-Public Use
  Company Number: None

PATIENT
  Sex: Female

DRUGS (1)
  1. GAMMAGARD LIQUID [Suspect]
     Active Substance: HUMAN IMMUNOGLOBULIN G
     Dosage: FREQUENCY : EVERY THREE WEEKS;?
     Route: 042

REACTIONS (6)
  - Nasal congestion [None]
  - Cough [None]
  - Oropharyngeal pain [None]
  - Pain [None]
  - Sinusitis [None]
  - Viral upper respiratory tract infection [None]
